FAERS Safety Report 7971297-6 (Version None)
Quarter: 2011Q4

REPORT INFORMATION
  Report Type: 
  Country: None (occurrence: None)
  Receive Date: 20111212
  Receipt Date: 20111006
  Transmission Date: 20120403
  Serious: No
  Sender: FDA-Public Use
  Company Number: US-BRISTOL-MYERS SQUIBB COMPANY-16086977

PATIENT
  Age: 63 Year
  Sex: Female
  Weight: 80 kg

DRUGS (4)
  1. BENADRYL [Concomitant]
     Dates: start: 20110921
  2. ALOXI [Concomitant]
     Dosage: SCHEDULED RECEIVED ON 22SEP11
     Dates: start: 20110921
  3. PEPCID [Concomitant]
     Dates: start: 20110921
  4. IXEMPRA KIT [Suspect]
     Indication: BREAST CANCER
     Dosage: 2 VIALSUSED(76MG ADMINISTERED: 14 MG WASTED)2ND TREATMENT ON 21SEP2011.
     Dates: start: 20110831

REACTIONS (2)
  - INCORRECT DRUG ADMINISTRATION DURATION [None]
  - ADVERSE EVENT [None]
